FAERS Safety Report 20779319 (Version 1)
Quarter: 2022Q2

REPORT INFORMATION
  Report Type: Spontaneous
  Country: US (occurrence: None)
  Receive Date: 20220503
  Receipt Date: 20220503
  Transmission Date: 20220721
  Serious: No
  Sender: FDA-Public Use
  Company Number: None

PATIENT

DRUGS (2)
  1. INSULIN NOS [Suspect]
     Active Substance: INSULIN NOS
  2. INSULIN NOS [Suspect]
     Active Substance: INSULIN NOS

REACTIONS (7)
  - Blood glucose decreased [None]
  - Device dispensing error [None]
  - Drug administered in wrong device [None]
  - Treatment noncompliance [None]
  - Product dose omission issue [None]
  - Device dispensing error [None]
  - Incorrect dose administered [None]
